FAERS Safety Report 6196369-0 (Version None)
Quarter: 2009Q2

REPORT INFORMATION
  Report Type: 
  Country: None (occurrence: None)
  Receive Date: 20090518
  Receipt Date: 20090518
  Transmission Date: 20091009
  Serious: Yes (Hospitalization)
  Sender: FDA-Public Use
  Company Number: None

PATIENT
  Sex: Female
  Weight: 40.1 kg

DRUGS (1)
  1. METHOTREXATE [Suspect]
     Dosage: 6550 MG

REACTIONS (7)
  - AMNESIA [None]
  - ATAXIA [None]
  - CONFUSIONAL STATE [None]
  - CONVULSION [None]
  - DIZZINESS [None]
  - HALLUCINATION [None]
  - NERVOUS SYSTEM DISORDER [None]
